FAERS Safety Report 9807351 (Version 1)
Quarter: 2014Q1

REPORT INFORMATION
  Report Type: Spontaneous
  Country: BR (occurrence: BR)
  Receive Date: 20140110
  Receipt Date: 20140110
  Transmission Date: 20141002
  Serious: Yes (Other)
  Sender: FDA-Public Use
  Company Number: BR-ACCORD-021276

PATIENT
  Age: 57 Year
  Sex: Female
  Weight: 54 kg

DRUGS (10)
  1. PACLITAXEL/PACLITAXEL LIPOSOME [Suspect]
     Indication: CHEMOTHERAPY
     Route: 042
     Dates: start: 20130611, end: 20130820
  2. METAMIZOLE SODIUM [Concomitant]
     Dosage: 40GTS
     Route: 048
     Dates: start: 20130607, end: 20130707
  3. DEXAMETHASONE [Concomitant]
     Route: 042
     Dates: start: 20130611, end: 20130820
  4. BROMOPRIDE [Concomitant]
     Route: 048
     Dates: start: 20130607, end: 20130707
  5. CARBOPLATIN [Concomitant]
     Route: 042
     Dates: start: 20130611, end: 20130820
  6. DEXAMETHASONE [Concomitant]
     Route: 048
     Dates: start: 20130610, end: 20130823
  7. RANITIDINE [Concomitant]
     Route: 042
     Dates: start: 20130611, end: 20130820
  8. NO DRUG NAME [Concomitant]
     Route: 048
     Dates: start: 20130612, end: 20130823
  9. DIPHENHYDRAMINE [Concomitant]
     Route: 042
     Dates: start: 20130611, end: 20130820
  10. ONDANSETRON [Concomitant]
     Route: 042
     Dates: start: 20130611, end: 20130820

REACTIONS (2)
  - Cough [Recovered/Resolved]
  - Throat irritation [Recovered/Resolved]
